FAERS Safety Report 7791327-4 (Version None)
Quarter: 2011Q4

REPORT INFORMATION
  Report Type: 
  Country: None (occurrence: None)
  Receive Date: 20111003
  Receipt Date: 20110920
  Transmission Date: 20120403
  Serious: No
  Sender: FDA-Public Use
  Company Number: US-BIOGENIDEC-2011BI036240

PATIENT
  Age: 44 Year
  Sex: Female

DRUGS (5)
  1. 4 AMINOPYRIDINE [Concomitant]
     Indication: MULTIPLE SCLEROSIS
     Dates: start: 20080101
  2. AVONEX [Suspect]
     Indication: MULTIPLE SCLEROSIS
     Route: 030
     Dates: start: 20060101
  3. SOLU-MEDROL [Concomitant]
     Indication: MULTIPLE SCLEROSIS
     Dates: start: 20080101
  4. PRISTIQ [Concomitant]
     Indication: DEPRESSION
  5. WELLBUTRIN [Concomitant]
     Indication: DEPRESSION

REACTIONS (6)
  - HYPOTHYROIDISM [None]
  - MUSCLE SPASMS [None]
  - ALOPECIA [None]
  - WEIGHT INCREASED [None]
  - LIPIDS INCREASED [None]
  - PREHYPERTENSION [None]
